FAERS Safety Report 9250525 (Version 1)
Quarter: 2013Q1

REPORT INFORMATION
  Report Type: Spontaneous
  Country: US (occurrence: None)
  Receive Date: 20130305
  Receipt Date: 20130305
  Transmission Date: 20140127
  Serious: Yes (Other)
  Sender: FDA-Public Use
  Company Number: 163-21880-12040451

PATIENT
  Age: 85 Year
  Sex: Female

DRUGS (17)
  1. REVLIMID [Suspect]
     Indication: MYELODYSPLASTIC SYNDROME
     Dosage: 5 MG, QD (21 DAYS ON , 7 DAYS OFF, PO
     Route: 048
     Dates: start: 20120307, end: 20120313
  2. ALBUTEROL (SALBUTAMOL) [Suspect]
  3. CALCIUM (CALCIUM) [Suspect]
  4. COLON-AID (OTHER THERAPEUTIC PRODUCTS) [Suspect]
  5. COUMADIN (WARFARIN SODIUM) [Suspect]
  6. DIOVAN (VALSARTAN) [Suspect]
  7. GLIPIZIDE (GLIPIZIDE) [Suspect]
  8. JANUVIA (SITAGLIPTIN PHOSPHATE) [Suspect]
  9. LEVOTHYROXINE (LEVOTHYROXINE) [Suspect]
  10. LUTEIN [Suspect]
  11. OMEPRAZOLE (OMEPRAZOLE) [Suspect]
  12. STOOL SOFTENER (DOCUSATE SODIUM) [Suspect]
  13. SULFAZINE [Suspect]
  14. VITAMIN B12 (CYANOCOBALAMIN) [Suspect]
  15. VITAMIN B6 (PYRIDOXINE HYDROCHLORIDE) [Suspect]
  16. ZINC [Suspect]
  17. ZYRTEC [Suspect]

REACTIONS (2)
  - Anaemia [None]
  - Dizziness [None]
